FAERS Safety Report 9006273 (Version 1)
Quarter: 2013Q1

REPORT INFORMATION
  Report Type: Spontaneous
  Country: US (occurrence: US)
  Receive Date: 20130110
  Receipt Date: 20130110
  Transmission Date: 20140127
  Serious: Yes (Other)
  Sender: FDA-Public Use
  Company Number: US-009507513-1301USA003257

PATIENT
  Age: 63 Year
  Sex: Female

DRUGS (7)
  1. SINGULAIR [Suspect]
  2. PREDNISONE [Suspect]
     Indication: ORAL CANDIDIASIS
     Dosage: 10 MG, UNK
  3. PREDNISONE [Suspect]
     Indication: RASH MACULAR
     Dosage: 60 MG, UNK
  4. PREDNISONE [Suspect]
     Indication: RESPIRATORY DISORDER
  5. NYSTATIN [Suspect]
     Indication: IMMUNE TOLERANCE INDUCTION
  6. FLUCONAZOLE [Suspect]
     Indication: ASTHMA
  7. ADVAIR [Suspect]
     Indication: URTICARIA

REACTIONS (6)
  - Respiratory disorder [Unknown]
  - Blood immunoglobulin E [Unknown]
  - Asthma [Unknown]
  - Urticaria [Unknown]
  - Rash macular [Unknown]
  - Rash [Unknown]
